FAERS Safety Report 15231432 (Version 2)
Quarter: 2018Q3

REPORT INFORMATION
  Report Type: Spontaneous
  Country: CN (occurrence: CN)
  Receive Date: 20180802
  Receipt Date: 20180810
  Transmission Date: 20181010
  Serious: Yes (Other)
  Sender: FDA-Public Use
  Company Number: CN-009507513-1808CHN000051

PATIENT
  Age: 36 Year
  Sex: Male

DRUGS (1)
  1. FINASTERIDE. [Suspect]
     Active Substance: FINASTERIDE
     Indication: ALOPECIA
     Dosage: 1 MG, ONCE DAILY (QD)
     Route: 048
     Dates: start: 2014, end: 2016

REACTIONS (2)
  - Sweat gland tumour [Recovering/Resolving]
  - Breast hyperplasia [Recovering/Resolving]
